FAERS Safety Report 17755073 (Version 2)
Quarter: 2020Q2

REPORT INFORMATION
  Report Type: Spontaneous
  Country: US (occurrence: US)
  Receive Date: 20200507
  Receipt Date: 20200605
  Transmission Date: 20200714
  Serious: Yes (Hospitalization, Other)
  Sender: FDA-Public Use
  Company Number: US-ROCHE-2548039

PATIENT
  Sex: Female

DRUGS (2)
  1. XOLAIR [Suspect]
     Active Substance: OMALIZUMAB
     Indication: URTICARIA THERMAL
  2. XOLAIR [Suspect]
     Active Substance: OMALIZUMAB
     Indication: COLD URTICARIA
     Route: 058
     Dates: start: 20190219

REACTIONS (6)
  - Abdominal pain [Unknown]
  - Anaphylactic reaction [Unknown]
  - Off label use [Unknown]
  - Intentional product misuse [Unknown]
  - Abdominal pain upper [Unknown]
  - Urticaria [Unknown]
